FAERS Safety Report 23908987 (Version 3)
Quarter: 2024Q3

REPORT INFORMATION
  Report Type: Spontaneous
  Country: JP (occurrence: JP)
  Receive Date: 20240528
  Receipt Date: 20240808
  Transmission Date: 20241016
  Serious: Yes (Death, Hospitalization, Other)
  Sender: UCB
  Company Number: JP-UCBJ-CD202404763UCBPHAPROD

PATIENT
  Age: 25 Year
  Sex: Male
  Weight: 79.7 kg

DRUGS (16)
  1. VIMPAT [Suspect]
     Active Substance: LACOSAMIDE
     Indication: Partial seizures
     Dosage: 200 MILLIGRAM, 2X/DAY (BID)
     Route: 048
  2. LEVETIRACETAM [Concomitant]
     Active Substance: LEVETIRACETAM
     Indication: Product used for unknown indication
     Dosage: 3000 MILLIGRAM PER DAY
     Route: 048
  3. PREDNISOLONE [Concomitant]
     Active Substance: PREDNISOLONE
     Indication: Product used for unknown indication
     Dosage: 40 MILLIGRAM PER DAY
  4. PREDNISOLONE [Concomitant]
     Active Substance: PREDNISOLONE
     Dosage: 15 MILLIGRAM PER DAY
  5. HUMAN IMMUNOGLOBULIN G [Concomitant]
     Active Substance: HUMAN IMMUNOGLOBULIN G
     Indication: Product used for unknown indication
     Dosage: 30 GRAM PER DAY
     Route: 042
  6. MIDAZOLAM [Concomitant]
     Active Substance: MIDAZOLAM
     Indication: Product used for unknown indication
     Dosage: UNK
  7. PROPOFOL [Concomitant]
     Active Substance: PROPOFOL
     Indication: Product used for unknown indication
     Dosage: UNK
  8. THIAMYLAL SODIUM [Concomitant]
     Active Substance: THIAMYLAL SODIUM
     Indication: Product used for unknown indication
     Dosage: UNK
  9. KETALAR [Concomitant]
     Active Substance: KETAMINE HYDROCHLORIDE
     Indication: Product used for unknown indication
     Dosage: UNK
  10. CARBAMAZEPINE [Concomitant]
     Active Substance: CARBAMAZEPINE
     Indication: Product used for unknown indication
     Dosage: UNK
  11. CLONAZEPAM [Concomitant]
     Active Substance: CLONAZEPAM
     Indication: Product used for unknown indication
     Dosage: 6 MILLIGRAM PER DAY
  12. VALPROATE SODIUM [Concomitant]
     Active Substance: VALPROATE SODIUM
     Indication: Product used for unknown indication
     Dosage: UNK
  13. PHENOBARBITAL [Concomitant]
     Active Substance: PHENOBARBITAL
     Indication: Product used for unknown indication
     Dosage: UNK
  14. PERAMPANEL [Concomitant]
     Active Substance: PERAMPANEL
     Indication: Product used for unknown indication
     Dosage: 4 MILLIGRAM PER DAY
  15. ACYCLOVIR [Concomitant]
     Active Substance: ACYCLOVIR
     Indication: Meningitis
     Dosage: UNK
     Route: 042
  16. CEFTRIAXONE SODIUM [Concomitant]
     Active Substance: CEFTRIAXONE SODIUM
     Indication: Meningitis
     Dosage: UNK

REACTIONS (10)
  - Bacteraemia [Fatal]
  - Multiple organ dysfunction syndrome [Fatal]
  - Cerebral atrophy [Unknown]
  - Hippocampal sclerosis [Unknown]
  - Encephalopathy [Unknown]
  - Encephalitis [Unknown]
  - Seizure [Unknown]
  - Plasmapheresis [Unknown]
  - Tracheostomy [Unknown]
  - Interleukin level increased [Recovered/Resolved]
